FAERS Safety Report 8202108-1 (Version None)
Quarter: 2012Q1

REPORT INFORMATION
  Report Type: 
  Country: None (occurrence: None)
  Receive Date: 20120312
  Receipt Date: 20120302
  Transmission Date: 20120608
  Serious: Yes (Death, Other)
  Sender: FDA-Public Use
  Company Number: US-PURDUE-USA-2012-0083171

PATIENT
  Age: 48 Year
  Sex: Female

DRUGS (3)
  1. ADDERALL 5 [Suspect]
     Indication: PRODUCT USED FOR UNKNOWN INDICATION
  2. METHYLIN [Suspect]
     Indication: PRODUCT USED FOR UNKNOWN INDICATION
  3. BUTRANS [Suspect]
     Indication: FIBROMYALGIA
     Dosage: 20 MCG/HR, DAILY

REACTIONS (4)
  - CIRCULATORY COLLAPSE [None]
  - DEATH [None]
  - ABDOMINAL PAIN UPPER [None]
  - VOMITING [None]
